FAERS Safety Report 7833912-7 (Version None)
Quarter: 2011Q4

REPORT INFORMATION
  Report Type: 
  Country: None (occurrence: None)
  Receive Date: 20111024
  Receipt Date: 20111019
  Transmission Date: 20120403
  Serious: Yes (Hospitalization)
  Sender: FDA-Public Use
  Company Number: CL-ROCHE-1005978

PATIENT
  Sex: Female
  Weight: 60 kg

DRUGS (1)
  1. XELODA [Suspect]
     Indication: COLON CANCER
     Route: 048
     Dates: start: 20110915

REACTIONS (6)
  - FEELING HOT [None]
  - PYREXIA [None]
  - ASPHYXIA [None]
  - VOMITING [None]
  - HEADACHE [None]
  - DIARRHOEA [None]
